FAERS Safety Report 6138759-8 (Version None)
Quarter: 2009Q1

REPORT INFORMATION
  Report Type: 
  Country: None (occurrence: None)
  Receive Date: 20090331
  Receipt Date: 20090318
  Transmission Date: 20090719
  Serious: Yes (Other)
  Sender: FDA-Public Use
  Company Number: US-ROCHE-432858

PATIENT
  Sex: Male
  Weight: 56.7 kg

DRUGS (3)
  1. ACCUTANE [Suspect]
     Route: 048
     Dates: start: 19960708, end: 19960826
  2. ACCUTANE [Suspect]
     Route: 048
     Dates: start: 19970402, end: 19970723
  3. ACCUTANE [Suspect]
     Route: 048
     Dates: start: 19981002, end: 19981130

REACTIONS (9)
  - ANXIETY [None]
  - COLITIS ULCERATIVE [None]
  - DEPRESSION [None]
  - EPISTAXIS [None]
  - INFLAMMATORY BOWEL DISEASE [None]
  - LIP DRY [None]
  - MENISCUS LESION [None]
  - NIGHT BLINDNESS [None]
  - RENAL DISORDER [None]
